FAERS Safety Report 7554691-7 (Version None)
Quarter: 2011Q2

REPORT INFORMATION
  Report Type: 
  Country: None (occurrence: None)
  Receive Date: 20110610
  Receipt Date: 20110601
  Transmission Date: 20111010
  Serious: Yes (Hospitalization)
  Sender: FDA-Public Use
  Company Number: 2009002389

PATIENT
  Age: 65 Year
  Sex: Male
  Weight: 55 kg

DRUGS (7)
  1. OMPRAZOLE (OMEPRAZOLE) [Concomitant]
  2. ERLOTINIB HYDROCHLORIDE [Suspect]
     Indication: NON-SMALL CELL LUNG CANCER
     Dosage: 100 MG, UID/QD, ORAL
     Route: 048
     Dates: start: 20090422
  3. NYSTATIN [Concomitant]
  4. CODEINE SULFATE [Concomitant]
  5. SERETIDE (SERETIDE) [Concomitant]
  6. SPIRIVA [Concomitant]
  7. CP-751,871 (CP-751,871) INFUSION [Suspect]
     Indication: NON-SMALL CELL LUNG CANCER
     Dosage: 20 MG/KG CYCLIC, IV NOS
     Route: 042
     Dates: start: 20090422

REACTIONS (2)
  - EMPHYSEMA [None]
  - PNEUMOTHORAX [None]
